FAERS Safety Report 8565957-6 (Version None)
Quarter: 2012Q3

REPORT INFORMATION
  Report Type: 
  Country: None (occurrence: None)
  Receive Date: 20120803
  Receipt Date: 20111007
  Transmission Date: 20120928
  Serious: No
  Sender: FDA-Public Use
  Company Number: US-ABBOTT-11P-163-0861861-00

PATIENT
  Sex: Male
  Weight: 108.96 kg

DRUGS (3)
  1. ASPIRIN [Concomitant]
     Indication: PROPHYLAXIS
  2. LISINOPRIL [Concomitant]
     Indication: PRODUCT USED FOR UNKNOWN INDICATION
  3. NIASPAN [Suspect]
     Indication: BLOOD TRIGLYCERIDES INCREASED
     Dates: start: 20110930

REACTIONS (1)
  - FATIGUE [None]
